FAERS Safety Report 10959521 (Version 2)
Quarter: 2015Q2

REPORT INFORMATION
  Report Type: Spontaneous
  Country: US (occurrence: US)
  Receive Date: 20150327
  Receipt Date: 20150524
  Transmission Date: 20150821
  Serious: Yes (Other)
  Sender: FDA-Public Use
  Company Number: US-JNJFOC-20150220228

PATIENT
  Age: 48 Year
  Sex: Female

DRUGS (9)
  1. DACARBAZINE. [Concomitant]
     Active Substance: DACARBAZINE
     Indication: SOFT TISSUE SARCOMA
     Route: 042
     Dates: start: 20120320, end: 20120320
  2. MORPHINE [Concomitant]
     Active Substance: MORPHINE
     Route: 065
  3. FENTANYL. [Suspect]
     Active Substance: FENTANYL
     Indication: ABDOMINAL PAIN
     Route: 062
     Dates: start: 201206
  4. DACARBAZINE. [Concomitant]
     Active Substance: DACARBAZINE
     Indication: SOFT TISSUE SARCOMA
     Dosage: CYCLE 4
     Route: 042
     Dates: start: 201206, end: 20121218
  5. FENTANYL. [Suspect]
     Active Substance: FENTANYL
     Indication: ABDOMINAL PAIN
     Route: 062
     Dates: start: 2009, end: 20120611
  6. DACARBAZINE. [Concomitant]
     Active Substance: DACARBAZINE
     Indication: SOFT TISSUE SARCOMA
     Dosage: CYCLE 3
     Route: 042
     Dates: start: 201205, end: 201206
  7. GABAPENTIN. [Concomitant]
     Active Substance: GABAPENTIN
     Indication: PAIN IN EXTREMITY
     Route: 048
     Dates: start: 20120508
  8. FENTANYL. [Suspect]
     Active Substance: FENTANYL
     Indication: ABDOMINAL PAIN
     Route: 062
     Dates: start: 20120612, end: 201206
  9. DACARBAZINE. [Concomitant]
     Active Substance: DACARBAZINE
     Indication: SOFT TISSUE SARCOMA
     Dosage: CYCLE 2
     Route: 042
     Dates: start: 201204, end: 201204

REACTIONS (1)
  - Toxicity to various agents [Recovered/Resolved]

NARRATIVE: CASE EVENT DATE: 20120613
